FAERS Safety Report 25980801 (Version 2)
Quarter: 2025Q4

REPORT INFORMATION
  Report Type: Report from Study
  Country: US (occurrence: US)
  Receive Date: 20251030
  Receipt Date: 20251229
  Transmission Date: 20260118
  Serious: Yes (Other)
  Sender: ALEXION PHARMACEUTICALS
  Company Number: US-AstraZeneca-CH-00980427A

PATIENT
  Age: 47 Year
  Sex: Female
  Weight: 60.3 kg

DRUGS (12)
  1. DURVALUMAB [Suspect]
     Active Substance: DURVALUMAB
     Indication: Gastric cancer
     Dosage: 1500 MILLIGRAM, Q4W
     Dates: start: 20251023
  2. BISACODYL [Concomitant]
     Active Substance: BISACODYL
     Indication: Constipation
     Dosage: 10 MILLIGRAM, QD, AS NEEDED
     Dates: start: 20251010
  3. DEXAMETHASONE [Concomitant]
     Active Substance: DEXAMETHASONE
     Dosage: 4 MILLIGRAM, BID
     Route: 061
     Dates: start: 20251020
  4. FAMOTIDINE [Concomitant]
     Active Substance: FAMOTIDINE
     Dosage: 20 MILLIGRAM, BID
     Route: 061
     Dates: start: 20250701
  5. LIDOCAINE\PRILOCAINE [Concomitant]
     Active Substance: LIDOCAINE\PRILOCAINE
     Dosage: 30 GRAM
     Route: 048
  6. MAGNESIUM HYDROXIDE [Concomitant]
     Active Substance: MAGNESIUM HYDROXIDE
     Indication: Constipation
     Dosage: 900 MILLILITER, TAKE 30 ML DAILY
     Route: 061
  7. ONDANSETRON [Concomitant]
     Active Substance: ONDANSETRON
     Indication: Nausea
     Dosage: 8 MILLIGRAM
     Route: 061
  8. ONDANSETRON [Concomitant]
     Active Substance: ONDANSETRON
     Indication: Vomiting
  9. PANTOPRAZOLE [Concomitant]
     Active Substance: PANTOPRAZOLE
     Dosage: 40 MILLIGRAM, BID
     Route: 061
     Dates: start: 20250618
  10. POLYETHYLENE GLYCOL [Concomitant]
     Active Substance: POLYETHYLENE GLYCOL
     Dosage: ILL CAP WITH POWDER TO 17G LINE AND DISSOLVE IN 4 TO 8OZ OF WATER. DRINK 2 TIMES A DAY.
     Route: 061
  11. PROCHLORPERAZINE [Concomitant]
     Active Substance: PROCHLORPERAZINE
     Indication: Nausea
     Dosage: 10 MILLIGRAM, TAKE 1 TABLET BY MOUTH EVERY 6 HOURS AS NEEDED FOR NAUSEA/VOMITING
     Route: 061
  12. PROCHLORPERAZINE [Concomitant]
     Active Substance: PROCHLORPERAZINE
     Indication: Vomiting

REACTIONS (10)
  - Hypokalaemia [Unknown]
  - Adenocarcinoma gastric [Unknown]
  - Adult failure to thrive [Recovered/Resolved]
  - Cancer pain [Unknown]
  - Iron deficiency anaemia [Unknown]
  - Nausea [Unknown]
  - Vomiting [Unknown]
  - Anaemia [Unknown]
  - Constipation [Unknown]
  - Malnutrition [Unknown]

NARRATIVE: CASE EVENT DATE: 20251006
